FAERS Safety Report 9921549 (Version 2)
Quarter: 2014Q1

REPORT INFORMATION
  Report Type: Spontaneous
  Country: US (occurrence: US)
  Receive Date: 20140225
  Receipt Date: 20140321
  Transmission Date: 20141002
  Serious: No
  Sender: FDA-Public Use
  Company Number: US-PFIZER INC-2014051039

PATIENT
  Age: 64 Year
  Sex: Male
  Weight: 91.97 kg

DRUGS (11)
  1. SUTENT [Suspect]
     Indication: RENAL CELL CARCINOMA
     Dosage: 50 MG DAILY (4 WEEKS EVERY 6 WEEKS)
     Route: 048
     Dates: start: 20140203
  2. BRIMONIDINE TARTRATE [Concomitant]
     Dosage: 1 DROPS BOTH EYES. EVERY NIGHT AT BEDTIME
  3. CLEARLAX [Concomitant]
     Dosage: 17 G DAILY
     Route: 048
  4. CLONAZEPAM [Concomitant]
     Dosage: 1 MG, 2X/DAY
     Route: 048
  5. CLONIDINE HYDROCHLORIDE [Concomitant]
     Dosage: 0.1 MG, DAILY (EVERY NIGHT AT BEDTIME)
  6. DOXAZOSIN MESILATE [Concomitant]
     Dosage: 8 MG, 2X/DAY
     Route: 048
  7. FERROUS SULFATE [Concomitant]
     Indication: IRON DEFICIENCY ANAEMIA
     Dosage: 325 MG, 3X/DAY
     Route: 048
  8. LATANOPROST [Concomitant]
     Dosage: 1 DROP, EVERY NIGHT AT BEDTIME
     Route: 047
  9. LORAZEPAM [Concomitant]
     Dosage: 0.5 MG, 2X/DAY
     Route: 048
  10. LOSARTAN POTASSIUM [Concomitant]
     Dosage: 100 MG, DAILY (EVERY NIGHT AT BEDTIME)
     Route: 048
  11. MIRALAX [Concomitant]
     Indication: CONSTIPATION

REACTIONS (5)
  - Pus in stool [Unknown]
  - Mucous stools [Unknown]
  - Erythema [Recovered/Resolved]
  - Nocturia [Unknown]
  - Prostatic specific antigen increased [Unknown]
